FAERS Safety Report 17798689 (Version 2)
Quarter: 2020Q2

REPORT INFORMATION
  Report Type: Spontaneous
  Country: FR (occurrence: FR)
  Receive Date: 20200518
  Receipt Date: 20200520
  Transmission Date: 20200714
  Serious: No
  Sender: FDA-Public Use
  Company Number: NVSC2020FR132656

PATIENT
  Age: 75 Year
  Sex: Female

DRUGS (15)
  1. TOBRADEX [Suspect]
     Active Substance: DEXAMETHASONE\TOBRAMYCIN
     Dosage: 4 GTT, QD, FOR TWO MONTHS (LAST ADMINISTERED)
     Route: 065
     Dates: start: 20200212
  2. FRAKIDEX [Suspect]
     Active Substance: DEXAMETHASONE\FRAMYCETIN
     Dosage: 1 GTT, QD, IN THE LEFT EYE, FOR 7 DAYS
     Route: 047
     Dates: start: 20200212
  3. INDOCOLLYRE [Suspect]
     Active Substance: INDOMETHACIN
     Dosage: 1 GTT, QD,FOR 30 DAYS
     Route: 047
     Dates: start: 20200102, end: 20200212
  4. NEOSYNEPHRINE [Suspect]
     Active Substance: PHENYLEPHRINE HYDROCHLORIDE
     Indication: PREOPERATIVE CARE
     Route: 065
  5. MONOOX [Concomitant]
     Indication: PREOPERATIVE CARE
     Dosage: FOR THREE DAYS BEFORE SURGERY
     Route: 047
     Dates: start: 2019, end: 2019
  6. MYDRIATICUM [Suspect]
     Active Substance: TROPICAMIDE
     Dosage: ONE DROP IN EACH EYE TO TAKE ONE HOUR PRIOR LASER
     Route: 065
     Dates: start: 20200212
  7. FRAKIDEX [Suspect]
     Active Substance: DEXAMETHASONE\FRAMYCETIN
     Indication: POSTOPERATIVE CARE
     Dosage: 1 GTT, QD, IN THE LEFT EYE, FOR 7 DAYS
     Route: 047
     Dates: start: 2020
  8. INDOCOLLYRE [Suspect]
     Active Substance: INDOMETHACIN
     Indication: POSTOPERATIVE CARE
     Dosage: 2 GTT, QD
     Route: 047
     Dates: start: 201910
  9. MONOOX [Concomitant]
     Indication: PREOPERATIVE CARE
  10. AZOPT [Suspect]
     Active Substance: BRINZOLAMIDE
     Indication: PREOPERATIVE CARE
     Dosage: 1 GTT, QD, IN THE LEFT EYE, FOR 7 DAYS
     Route: 047
     Dates: start: 2020, end: 20200212
  11. NEOSYNEPHRINE [Suspect]
     Active Substance: PHENYLEPHRINE HYDROCHLORIDE
     Dosage: UNK
     Route: 065
     Dates: start: 20200212
  12. MYDRIATICUM [Suspect]
     Active Substance: TROPICAMIDE
     Indication: PREOPERATIVE CARE
     Dosage: ONE DROP IN EACH EYE TO TAKE ONE HOUR PRIOR LASER
     Route: 065
  13. TOBRADEX [Suspect]
     Active Substance: DEXAMETHASONE\TOBRAMYCIN
     Indication: POSTOPERATIVE CARE
     Dosage: 4 GTT, QD, FOR TWO MONTHS
     Route: 065
     Dates: start: 201910
  14. HAMAMELIS VIRGINIANA [Suspect]
     Active Substance: HAMAMELIS VIRGINIANA ROOT BARK/STEM BARK
     Indication: POSTOPERATIVE CARE
     Dosage: FOR BOTH EYES AFTER EACH SURGERY
     Route: 065
     Dates: start: 201910
  15. HAMAMELIS VIRGINIANA [Suspect]
     Active Substance: HAMAMELIS VIRGINIANA ROOT BARK/STEM BARK
     Dosage: LAST ADMINISTERED DOSE
     Route: 065
     Dates: start: 20200212

REACTIONS (14)
  - Periorbital swelling [Recovering/Resolving]
  - Eye pruritus [Recovering/Resolving]
  - Foreign body sensation in eyes [Not Recovered/Not Resolved]
  - Asthenopia [Not Recovered/Not Resolved]
  - Blepharitis [Recovering/Resolving]
  - Visual impairment [Unknown]
  - Eye irritation [Not Recovered/Not Resolved]
  - Dry eye [Not Recovered/Not Resolved]
  - Epistaxis [Recovered/Resolved]
  - Vision blurred [Recovering/Resolving]
  - Product prescribing error [Unknown]
  - Eye oedema [Not Recovered/Not Resolved]
  - Inflammation [Not Recovered/Not Resolved]
  - Conjunctivitis [Unknown]

NARRATIVE: CASE EVENT DATE: 2019
